FAERS Safety Report 17884176 (Version 1)
Quarter: 2020Q2

REPORT INFORMATION
  Report Type: Spontaneous
  Country: US (occurrence: US)
  Receive Date: 20200611
  Receipt Date: 20200611
  Transmission Date: 20200714
  Serious: No
  Sender: FDA-Public Use
  Company Number: None

PATIENT
  Sex: Male

DRUGS (2)
  1. LENVIMA [Concomitant]
     Active Substance: LENVATINIB
  2. AFINITOR [Suspect]
     Active Substance: EVEROLIMUS
     Indication: RENAL CANCER
     Route: 048

REACTIONS (7)
  - Hypertension [None]
  - Visual impairment [None]
  - Device leakage [None]
  - Brain neoplasm [None]
  - Blindness unilateral [None]
  - Retinal disorder [None]
  - Vitreous floaters [None]
